FAERS Safety Report 17837913 (Version 2)
Quarter: 2020Q3

REPORT INFORMATION
  Report Type: Spontaneous
  Country: US (occurrence: US)
  Receive Date: 20200528
  Receipt Date: 20200930
  Transmission Date: 20201103
  Serious: Yes (Other)
  Sender: FDA-Public Use
  Company Number: US-009507513-2005USA003596

PATIENT
  Age: 58 Year
  Sex: Male
  Weight: 81.63 kg

DRUGS (45)
  1. KEYTRUDA [Suspect]
     Active Substance: PEMBROLIZUMAB
     Dosage: 200 MILLIGRAM, Q3W
     Route: 042
     Dates: start: 20190830
  2. KEYTRUDA [Suspect]
     Active Substance: PEMBROLIZUMAB
     Dosage: 200 MILLIGRAM, Q3W
     Route: 042
     Dates: start: 20191122
  3. LEXAPRO [Concomitant]
     Active Substance: ESCITALOPRAM OXALATE
     Dosage: ONCE DAILY
     Route: 048
  4. ONDANSETRON [Concomitant]
     Active Substance: ONDANSETRON
     Indication: NAUSEA
     Dosage: AS NEEDED
     Route: 048
     Dates: start: 201906
  5. KEYTRUDA [Suspect]
     Active Substance: PEMBROLIZUMAB
     Dosage: 200 MILLIGRAM, Q3W
     Route: 042
     Dates: start: 20191011
  6. ALIMTA [Suspect]
     Active Substance: PEMETREXED DISODIUM
     Dosage: 1000 MILLIGRAM
     Dates: start: 20200417
  7. ALIMTA [Suspect]
     Active Substance: PEMETREXED DISODIUM
     Dosage: 1000 MILLIGRAM
     Dates: start: 20200728
  8. CARBOPLATIN. [Suspect]
     Active Substance: CARBOPLATIN
     Dosage: 600 MILLIGRAM
     Dates: start: 20190920
  9. PRINIVIL [Concomitant]
     Active Substance: LISINOPRIL
     Dosage: ONCE DAILY
     Route: 048
  10. KEYTRUDA [Suspect]
     Active Substance: PEMBROLIZUMAB
     Dosage: 200 MILLIGRAM, Q3W
     Route: 042
     Dates: start: 20191213
  11. ALIMTA [Suspect]
     Active Substance: PEMETREXED DISODIUM
     Dosage: 1000 MILLIGRAM
     Dates: start: 20191213
  12. ALIMTA [Suspect]
     Active Substance: PEMETREXED DISODIUM
     Dosage: 1000 MILLIGRAM
     Dates: start: 20200214
  13. ALIMTA [Suspect]
     Active Substance: PEMETREXED DISODIUM
     Dosage: 1000 MILLIGRAM
     Dates: start: 20200306
  14. ALIMTA [Suspect]
     Active Substance: PEMETREXED DISODIUM
     Dosage: 1000 MILLIGRAM
     Dates: start: 20200508
  15. CARBOPLATIN. [Suspect]
     Active Substance: CARBOPLATIN
     Dosage: 600 MILLIGRAM
     Dates: start: 20190809
  16. LORTAB [Concomitant]
     Active Substance: ACETAMINOPHEN\HYDROCODONE BITARTRATE
  17. FENOFIBRATE. [Concomitant]
     Active Substance: FENOFIBRATE
     Dosage: ONCE DAILY
     Route: 048
  18. MELOXICAM. [Concomitant]
     Active Substance: MELOXICAM
     Dosage: ONCE DAILY
     Route: 048
     Dates: start: 201902
  19. ALIMTA [Suspect]
     Active Substance: PEMETREXED DISODIUM
     Indication: LUNG NEOPLASM MALIGNANT
     Dosage: 950 MILLIGRAM
     Dates: start: 20190628
  20. KEYTRUDA [Suspect]
     Active Substance: PEMBROLIZUMAB
     Dosage: 200 MILLIGRAM, Q3W
     Route: 042
     Dates: start: 20190719
  21. KEYTRUDA [Suspect]
     Active Substance: PEMBROLIZUMAB
     Dosage: 200 MILLIGRAM, Q3W
     Route: 042
     Dates: start: 20190920
  22. ALIMTA [Suspect]
     Active Substance: PEMETREXED DISODIUM
     Dosage: 950 MILLIGRAM
     Dates: start: 20190809
  23. ALIMTA [Suspect]
     Active Substance: PEMETREXED DISODIUM
     Dosage: 1000 MILLIGRAM
     Dates: start: 20191101
  24. ALIMTA [Suspect]
     Active Substance: PEMETREXED DISODIUM
     Dosage: 1000 MILLIGRAM
     Dates: start: 20200707
  25. CARBOPLATIN. [Suspect]
     Active Substance: CARBOPLATIN
     Indication: LUNG NEOPLASM MALIGNANT
     Dosage: 600 MILLIGRAM
     Dates: start: 20190628
  26. CARBOPLATIN. [Suspect]
     Active Substance: CARBOPLATIN
     Dosage: 600 MILLIGRAM
     Dates: start: 20190719
  27. FOLIC ACID. [Concomitant]
     Active Substance: FOLIC ACID
     Dosage: ONCE DAILY
     Route: 048
     Dates: start: 201907
  28. KEYTRUDA [Suspect]
     Active Substance: PEMBROLIZUMAB
     Indication: NON-SMALL CELL LUNG CANCER
     Dosage: 200 MILLIGRAM, Q3W
     Route: 042
     Dates: start: 20190607
  29. ALIMTA [Suspect]
     Active Substance: PEMETREXED DISODIUM
     Dosage: 950 MILLIGRAM
     Dates: start: 20190920
  30. ALIMTA [Suspect]
     Active Substance: PEMETREXED DISODIUM
     Dosage: 1000 MILLIGRAM
     Dates: start: 20200605
  31. CARBOPLATIN. [Suspect]
     Active Substance: CARBOPLATIN
     Dosage: 600 MILLIGRAM
     Dates: start: 20190830
  32. CHOLECALCIFEROL [Concomitant]
     Active Substance: CHOLECALCIFEROL
     Dosage: STRENGTH: 2000 UNITS, ONCE DAILY
     Route: 048
  33. PROMETHAZINE [Concomitant]
     Active Substance: PROMETHAZINE HYDROCHLORIDE
     Indication: NAUSEA
     Dosage: AS NEEDED
     Route: 048
     Dates: start: 201906
  34. KEYTRUDA [Suspect]
     Active Substance: PEMBROLIZUMAB
     Dosage: 200 MILLIGRAM, Q3W
     Route: 042
     Dates: start: 20190809
  35. KEYTRUDA [Suspect]
     Active Substance: PEMBROLIZUMAB
     Dosage: 200 MILLIGRAM, Q3W
     Route: 042
     Dates: start: 20200110
  36. ALIMTA [Suspect]
     Active Substance: PEMETREXED DISODIUM
     Dosage: 950 MILLIGRAM
     Dates: start: 20190719
  37. ALIMTA [Suspect]
     Active Substance: PEMETREXED DISODIUM
     Dosage: 950 MILLIGRAM
     Dates: start: 20190830
  38. ALIMTA [Suspect]
     Active Substance: PEMETREXED DISODIUM
     Dosage: 950 MILLIGRAM
     Dates: start: 20191011
  39. ALIMTA [Suspect]
     Active Substance: PEMETREXED DISODIUM
     Dosage: 1000 MILLIGRAM
     Dates: start: 20191122
  40. KEYTRUDA [Suspect]
     Active Substance: PEMBROLIZUMAB
     Indication: LUNG NEOPLASM MALIGNANT
     Dosage: 200 MILLIGRAM, Q3W
     Route: 042
     Dates: start: 20190628
  41. KEYTRUDA [Suspect]
     Active Substance: PEMBROLIZUMAB
     Dosage: 200 MILLIGRAM, Q3W
     Route: 042
     Dates: start: 20191101
  42. ALIMTA [Suspect]
     Active Substance: PEMETREXED DISODIUM
     Indication: NON-SMALL CELL LUNG CANCER
     Dosage: 950 MILLIGRAM
     Dates: start: 20190607
  43. ALIMTA [Suspect]
     Active Substance: PEMETREXED DISODIUM
     Dosage: 1000 MILLIGRAM
     Dates: start: 20200821
  44. CARBOPLATIN. [Suspect]
     Active Substance: CARBOPLATIN
     Indication: NON-SMALL CELL LUNG CANCER
     Dosage: 600 MILLIGRAM
     Dates: start: 20190607
  45. GABAPENTIN. [Concomitant]
     Active Substance: GABAPENTIN
     Dosage: THREE TIMES DAILY
     Route: 048
     Dates: start: 201906

REACTIONS (5)
  - Psoriasis [Unknown]
  - Product use issue [Unknown]
  - Psoriatic arthropathy [Recovering/Resolving]
  - Malignant neoplasm progression [Unknown]
  - Eczema [Recovering/Resolving]

NARRATIVE: CASE EVENT DATE: 20190628
